FAERS Safety Report 5414088-2 (Version None)
Quarter: 2007Q3

REPORT INFORMATION
  Report Type: 
  Country: None (occurrence: None)
  Receive Date: 20070814
  Receipt Date: 20070806
  Transmission Date: 20080115
  Serious: Yes (Hospitalization)
  Sender: FDA-Public Use
  Company Number: US-ELI_LILLY_AND_COMPANY-US200708001191

PATIENT
  Age: 70 Year
  Sex: Male
  Weight: 104.31 kg

DRUGS (20)
  1. BYETTA [Suspect]
     Indication: TYPE 2 DIABETES MELLITUS
     Dosage: 5 UG, 2/D
     Route: 058
     Dates: start: 20060808, end: 20060901
  2. BYETTA [Suspect]
     Dosage: 10 UG, 2/D
     Route: 058
     Dates: start: 20060901, end: 20070531
  3. BYETTA [Suspect]
     Dosage: 5 UG, 2/D
     Route: 058
     Dates: start: 20070626, end: 20070701
  4. BYETTA [Suspect]
     Dosage: 10 UG, 2/D
     Route: 058
     Dates: start: 20070701
  5. AVANDIA [Concomitant]
     Indication: TYPE 2 DIABETES MELLITUS
     Dosage: 32 MG, 2/D
     Route: 048
  6. LEXAPRO [Concomitant]
     Dosage: 20 MG, DAILY (1/D)
     Route: 048
     Dates: start: 20070620
  7. FUROSEMIDE [Concomitant]
     Indication: FLUID RETENTION
     Dosage: 20 MG, 3/D
     Route: 048
  8. LEVOXYL [Concomitant]
     Indication: THYROID DISORDER
     Dosage: 0.2 MG, DAILY (1/D)
     Route: 048
  9. LISINOPRIL [Concomitant]
     Dosage: 2.5 MG, DAILY (1/D)
     Route: 048
     Dates: end: 20070624
  10. LISINOPRIL [Concomitant]
     Dosage: 5 MG, DAILY (1/D)
     Route: 048
     Dates: start: 20070625
  11. ALLOPURINOL [Concomitant]
     Indication: GOUT
     Dosage: 300 MG, DAILY (1/D)
     Route: 048
  12. CARBIDOPA [Concomitant]
     Dosage: 25 MG, 2/D
     Route: 048
  13. VYTORIN [Concomitant]
     Indication: BLOOD CHOLESTEROL INCREASED
     Dosage: UNK, DAILY (1/D)
     Route: 048
  14. GLIMEPIRIDE [Concomitant]
     Indication: TYPE 2 DIABETES MELLITUS
     Dosage: 1 MG, DAILY (1/D)
     Route: 048
  15. ACIPHEX [Concomitant]
     Dosage: 20 MG, DAILY (1/D)
     Route: 048
  16. MIRAPEX [Concomitant]
     Dosage: 0.25 MG, DAILY (1/D)
     Route: 048
  17. ECOTRIN [Concomitant]
     Dosage: 81 MG, DAILY (1/D)
     Route: 048
     Dates: start: 20050101
  18. FERROUS SULFATE [Concomitant]
     Indication: ANAEMIA
     Dosage: 325 MG, 3/D
     Route: 048
     Dates: start: 20060101
  19. MULTI-VITAMIN [Concomitant]
     Dosage: UNK, UNKNOWN
  20. INSULIN [Concomitant]
     Dosage: UNK, UNKNOWN
     Dates: start: 20070531, end: 20070625

REACTIONS (7)
  - ASTHENIA [None]
  - BLOOD DISORDER [None]
  - BLOOD GLUCOSE DECREASED [None]
  - DIZZINESS [None]
  - MYOCARDIAL INFARCTION [None]
  - OEDEMA PERIPHERAL [None]
  - PNEUMONIA [None]
